FAERS Safety Report 5385138-7 (Version None)
Quarter: 2007Q3

REPORT INFORMATION
  Report Type: 
  Country: None (occurrence: None)
  Receive Date: 20070709
  Receipt Date: 20070622
  Transmission Date: 20080115
  Serious: Yes (Hospitalization)
  Sender: FDA-Public Use
  Company Number: 07-001392

PATIENT
  Age: 7 Year
  Sex: Male

DRUGS (8)
  1. ERYC [Suspect]
     Indication: NASOPHARYNGITIS
     Dosage: ORAL
     Route: 048
     Dates: start: 19760919, end: 19760921
  2. ERYC [Suspect]
     Indication: NASOPHARYNGITIS
     Dosage: ORAL
     Route: 048
     Dates: start: 19780101, end: 19780101
  3. ERYC [Suspect]
     Indication: NASOPHARYNGITIS
     Dosage: ORAL
     Route: 048
     Dates: start: 19790101, end: 19790101
  4. CARBAMAZEPINE [Suspect]
     Indication: EPILEPSY
     Dosage: 800 MG DAILY, ORAL
     Route: 048
     Dates: start: 19760101
  5. PHENOBARBITAL(PHENOBARBITAL) 100MG [Suspect]
     Indication: EPILEPSY
     Dosage: 100 MG DAILY, ORAL
     Route: 048
     Dates: start: 19760101
  6. PHENYLTOLOXAMINE (PHENYLTOLOXAMINE) [Suspect]
     Indication: NASOPHARYNGITIS
     Dates: start: 19760901, end: 19760901
  7. PHENYLPROPANOLAMINE HCL [Suspect]
     Indication: NASOPHARYNGITIS
     Dates: start: 19760901, end: 19760901
  8. ACETAMINOPHEN [Concomitant]

REACTIONS (4)
  - COORDINATION ABNORMAL [None]
  - DIPLOPIA [None]
  - DRUG INTERACTION POTENTIATION [None]
  - DRUG TOXICITY [None]
